FAERS Safety Report 16744561 (Version 2)
Quarter: 2023Q4

REPORT INFORMATION
  Report Type: Spontaneous
  Country: US (occurrence: US)
  Receive Date: 20190827
  Receipt Date: 20231211
  Transmission Date: 20240110
  Serious: Yes (Other)
  Sender: FDA-Public Use
  Company Number: US-AUROBINDO-AUR-APL-2019-040596

PATIENT
  Age: 15 Year
  Sex: Female

DRUGS (3)
  1. MIRTAZAPINE [Suspect]
     Active Substance: MIRTAZAPINE
     Indication: Depression
     Dosage: 15 MILLIGRAM
     Route: 065
  2. MIRTAZAPINE [Suspect]
     Active Substance: MIRTAZAPINE
     Indication: Major depression
  3. BUPROPION HYDROCHLORIDE [Suspect]
     Active Substance: BUPROPION HYDROCHLORIDE
     Indication: Major depression
     Dosage: EXTENDED RELEASE
     Route: 065

REACTIONS (6)
  - Weight increased [Unknown]
  - Sleep paralysis [Recovered/Resolved]
  - Condition aggravated [Recovered/Resolved]
  - Seizure [Unknown]
  - Rebound effect [Recovered/Resolved]
  - Rapid eye movements sleep abnormal [Recovered/Resolved]
